FAERS Safety Report 10166826 (Version 1)
Quarter: 2014Q2

REPORT INFORMATION
  Report Type: Spontaneous
  Country: US (occurrence: None)
  Receive Date: 20140508
  Receipt Date: 20140508
  Transmission Date: 20141212
  Serious: Yes (Death, Hospitalization)
  Sender: FDA-Public Use
  Company Number: UTC-048125

PATIENT
  Age: 83 Year
  Sex: Female

DRUGS (14)
  1. TYVASO [Suspect]
     Indication: PULMONARY ARTERIAL HYPERTENSION
     Dosage: 216 MCG (54 MCG, 4 IN 1 D) INHALATION
     Route: 055
     Dates: start: 20110807, end: 20140422
  2. AMOXICILLIN (AMOXICILLIN) [Concomitant]
  3. TYLENOL (PARACETAMOL) [Concomitant]
  4. ASPIRIN (ACETYLSALICYLIC ACID) [Concomitant]
  5. WARFARIN (WARFARIN) [Concomitant]
  6. METOLAZONE (METOLAZONE) [Concomitant]
  7. HYDRALAZINE (HYDRALAZINE) [Concomitant]
  8. VITAMIN D (VITAMIN D NOS) [Concomitant]
  9. BENZONATATE (BENZONATATE) [Concomitant]
  10. POTASSIUM (POTASSIUM) [Concomitant]
  11. AMLODIPINE (AMLODIPINE) [Concomitant]
  12. METOPROLOL ER (METOPROLOL) [Concomitant]
  13. LASIX (FUROSEMIDE) [Concomitant]
  14. HUMULIN N (INSULIN HUMAN) [Concomitant]

REACTIONS (1)
  - Death [None]
